FAERS Safety Report 8488404-1 (Version None)
Quarter: 2012Q2

REPORT INFORMATION
  Report Type: 
  Country: None (occurrence: None)
  Receive Date: 20120626
  Receipt Date: 20120616
  Transmission Date: 20120825
  Serious: Yes (Hospitalization, Other)
  Sender: FDA-Public Use
  Company Number: AUR-APL-2012-02682

PATIENT
  Age: 64 Year
  Sex: Male

DRUGS (2)
  1. ARIPIPRAZOLE [Suspect]
     Indication: PRODUCT USED FOR UNKNOWN INDICATION
     Dosage: 5 MG (5 MG,1 IN 1 D)
  2. CITALOPRAM HYDROBROMIDE [Suspect]
     Indication: PRODUCT USED FOR UNKNOWN INDICATION
     Dosage: 60 MG (60 MG,1 IN 1 D)

REACTIONS (13)
  - DIZZINESS [None]
  - SOMNOLENCE [None]
  - BLOOD PRESSURE FLUCTUATION [None]
  - SEROTONIN SYNDROME [None]
  - VERTIGO [None]
  - URINARY RETENTION [None]
  - NAUSEA [None]
  - HYPERREFLEXIA [None]
  - COGWHEEL RIGIDITY [None]
  - YAWNING [None]
  - MUSCLE CONTRACTIONS INVOLUNTARY [None]
  - ATAXIA [None]
  - CLONUS [None]
